FAERS Safety Report 11925960 (Version 1)
Quarter: 2016Q1

REPORT INFORMATION
  Report Type: Report from Study
  Country: CO (occurrence: CO)
  Receive Date: 20160119
  Receipt Date: 20160119
  Transmission Date: 20160526
  Serious: Yes (Other)
  Sender: FDA-Public Use
  Company Number: CO-ROCHE-1624413

PATIENT
  Age: 55 Year
  Sex: Female

DRUGS (1)
  1. TRASTUZUMAB [Suspect]
     Active Substance: TRASTUZUMAB
     Indication: BREAST CANCER
     Route: 042
     Dates: start: 20150105

REACTIONS (3)
  - Bradycardia [Recovered/Resolved with Sequelae]
  - Cardiomegaly [Recovered/Resolved with Sequelae]
  - Dengue fever [Recovered/Resolved]
